FAERS Safety Report 8605762-5 (Version None)
Quarter: 2012Q3

REPORT INFORMATION
  Report Type: 
  Country: None (occurrence: None)
  Receive Date: 20120809
  Receipt Date: 20120809
  Transmission Date: 20120928
  Serious: Yes (Hospitalization, Other)
  Sender: FDA-Public Use
  Company Number: None

PATIENT
  Sex: Female

DRUGS (12)
  1. XELODA [Suspect]
     Indication: BREAST CANCER
     Dosage: 2000 MG BID X 14D PO
     Route: 048
     Dates: start: 20120628, end: 20120731
  2. COMPAZINE [Concomitant]
  3. LOVAZA [Concomitant]
  4. CARDIZEM [Concomitant]
  5. HYDROCHLOROTHIAZIDE [Concomitant]
  6. COQ10 [Concomitant]
  7. LOTEMAX [Concomitant]
  8. OXYCODONE HCL [Concomitant]
  9. LEVOTHYROXINE SODIUM [Concomitant]
  10. FENTANYL [Concomitant]
  11. METFORMIN [Concomitant]
  12. VITAMIN D [Concomitant]

REACTIONS (6)
  - DRUG INTOLERANCE [None]
  - VOMITING [None]
  - DYSPNOEA [None]
  - NAUSEA [None]
  - RENAL FAILURE [None]
  - TREMOR [None]
